FAERS Safety Report 8967720 (Version 1)
Quarter: 2012Q4

REPORT INFORMATION
  Report Type: Spontaneous
  Country: FR (occurrence: None)
  Receive Date: 20121210
  Receipt Date: 20121210
  Transmission Date: 20130627
  Serious: Yes (Other)
  Sender: FDA-Public Use
  Company Number: 2012000256

PATIENT
  Age: 80 Year
  Sex: Male

DRUGS (6)
  1. ACEON (PERINDOPRIL ERBUMINE) TABLET [Suspect]
     Indication: HYPERTENSION
     Route: 048
     Dates: start: 200103, end: 20081005
  2. ACEON (PERINDOPRIL ERBUMINE) TABLET [Suspect]
     Indication: HYPERTENSION
     Dates: start: 200901, end: 201010
  3. OLMETEC (OMESARTAN MEDOXOMIL) [Concomitant]
  4. PERINDOPRIL (PERINDOPRIL) [Concomitant]
  5. RAMIPRIL (RAMIPRIL) [Concomitant]
  6. ENALAPRIL (ENALAPRIL) [Concomitant]

REACTIONS (2)
  - Abdominal pain [None]
  - Angioedema [None]
